FAERS Safety Report 5458641-9 (Version None)
Quarter: 2007Q3

REPORT INFORMATION
  Report Type: 
  Country: None (occurrence: None)
  Receive Date: 20070919
  Receipt Date: 20070912
  Transmission Date: 20080115
  Serious: Yes (Other)
  Sender: FDA-Public Use
  Company Number: JP-BRISTOL-MYERS SQUIBB COMPANY-13911847

PATIENT
  Age: 59 Year
  Sex: Male

DRUGS (1)
  1. MITOMYCIN [Suspect]
     Indication: MALIGNANT NEOPLASM OF RENAL PELVIS
     Route: 043

REACTIONS (1)
  - BLADDER TAMPONADE [None]
